FAERS Safety Report 24541984 (Version 1)
Quarter: 2024Q4

REPORT INFORMATION
  Report Type: Spontaneous
  Country: US (occurrence: None)
  Receive Date: 20241023
  Receipt Date: 20241023
  Transmission Date: 20250115
  Serious: Yes (Death)
  Sender: Public
  Company Number: None

PATIENT
  Age: 68 Year
  Sex: Male
  Weight: 112.9 kg

DRUGS (2)
  1. ZYNRELEF [Suspect]
     Active Substance: BUPIVACAINE\MELOXICAM
     Indication: Arthralgia
     Dosage: FREQUENCY : ONCE;?
     Route: 061
     Dates: start: 20240924, end: 20240925
  2. CELECOXIB [Concomitant]
     Active Substance: CELECOXIB

REACTIONS (3)
  - Embolism [None]
  - Loss of consciousness [None]
  - Dyspnoea [None]

NARRATIVE: CASE EVENT DATE: 20240925
